FAERS Safety Report 8726332 (Version 3)
Quarter: 2012Q4

REPORT INFORMATION
  Report Type: Report from Study
  Country: US (occurrence: US)
  Receive Date: 20120816
  Receipt Date: 20120927
  Transmission Date: 20130627
  Serious: Yes (Death, Life-Threatening, Hospitalization, Other)
  Sender: FDA-Public Use
  Company Number: US-GENZYME-CLOF-1002260

PATIENT
  Age: 4 Year
  Sex: Female
  Weight: 21.6 kg

DRUGS (18)
  1. CLOLAR [Suspect]
     Indication: BONE MARROW CONDITIONING REGIMEN
     Dosage: 52 mg/m2, qd, dose level 3
     Route: 042
     Dates: start: 20120713, end: 20120717
  2. CYTARABINE [Suspect]
     Indication: BONE MARROW CONDITIONING REGIMEN
     Dosage: 1000 mg/m2, qd
     Route: 042
     Dates: start: 20120712, end: 20120717
  3. TACROLIMUS [Concomitant]
     Indication: PRODUCT USED FOR UNKNOWN INDICATION
     Dosage: 0.3 mg, q12hr
     Route: 042
  4. TACROLIMUS [Concomitant]
     Dosage: 0.3 mg, bid
     Route: 042
     Dates: start: 20120801
  5. BACTRIM [Concomitant]
     Indication: PRODUCT USED FOR UNKNOWN INDICATION
     Dosage: UNK
     Route: 065
     Dates: end: 20120721
  6. FLUCONAZOLE [Concomitant]
     Indication: PRODUCT USED FOR UNKNOWN INDICATION
     Dosage: UNK
     Route: 065
     Dates: end: 20120802
  7. MYCOPHENOLATE MOFETIL [Concomitant]
     Indication: PRODUCT USED FOR UNKNOWN INDICATION
     Dosage: 675 mg, q 8 hrs
     Route: 042
  8. MICAFUNGIN [Concomitant]
     Indication: PRODUCT USED FOR UNKNOWN INDICATION
     Dosage: 20 mg, qd
     Route: 042
  9. ACYCLOVIR [Concomitant]
     Indication: PRODUCT USED FOR UNKNOWN INDICATION
     Dosage: 185 mg, bid
     Route: 042
  10. VANCOMYCIN [Concomitant]
     Indication: PRODUCT USED FOR UNKNOWN INDICATION
     Dosage: 450 mg, q 6 hrs
     Route: 042
  11. ACTIGALL [Concomitant]
     Indication: PRODUCT USED FOR UNKNOWN INDICATION
     Dosage: 150 mg, bid
     Route: 048
  12. INTRALIPID [Concomitant]
     Indication: PRODUCT USED FOR UNKNOWN INDICATION
     Dosage: 100 ml, qd
     Route: 065
  13. CEFTAZIDIME [Concomitant]
     Indication: PRODUCT USED FOR UNKNOWN INDICATION
     Dosage: 750 mg, q 8 hrs
     Route: 042
  14. ALDACTONE [Concomitant]
     Indication: PRODUCT USED FOR UNKNOWN INDICATION
     Dosage: 20 mg, bid
     Route: 048
  15. TOBRAMYCIN [Concomitant]
     Indication: PRODUCT USED FOR UNKNOWN INDICATION
     Dosage: 45 mg, q 8 hrs
     Route: 042
  16. LINEZOLID [Concomitant]
     Indication: PRODUCT USED FOR UNKNOWN INDICATION
     Dosage: 190 mg, q 8 hrs
     Route: 042
  17. KEPPRA [Concomitant]
     Indication: PRODUCT USED FOR UNKNOWN INDICATION
     Dosage: 500 mg, bid
     Route: 042
  18. GRANULOCYTE COLONY STIMULATING FACTOR [Concomitant]
     Indication: PRODUCT USED FOR UNKNOWN INDICATION
     Dosage: 180 mcg, qd
     Route: 042

REACTIONS (23)
  - Venoocclusive disease [Fatal]
  - Brain oedema [Fatal]
  - Brain death [Fatal]
  - Acute myeloid leukaemia recurrent [Fatal]
  - Convulsion [Recovered/Resolved with Sequelae]
  - Pupillary reflex impaired [Fatal]
  - Brain stem haemorrhage [Unknown]
  - Cerebral artery stenosis [Unknown]
  - Cerebral ischaemia [Unknown]
  - Brain herniation [Unknown]
  - Intracranial pressure increased [Unknown]
  - Blood pressure systolic decreased [Unknown]
  - Pupil fixed [Unknown]
  - Mental disorder [Fatal]
  - Ascites [Unknown]
  - Hyperreflexia [Fatal]
  - Pupils unequal [Fatal]
  - Meningitis bacterial [Fatal]
  - Bacteraemia [Fatal]
  - Staphylococcal bacteraemia [Fatal]
  - Pleural effusion [Unknown]
  - Respiratory failure [Unknown]
  - Pyrexia [Fatal]
